FAERS Safety Report 5710043-3 (Version None)
Quarter: 2008Q2

REPORT INFORMATION
  Report Type: 
  Country: None (occurrence: None)
  Receive Date: 20080418
  Receipt Date: 20070919
  Transmission Date: 20081010
  Serious: No
  Sender: FDA-Public Use
  Company Number: US-ASTRAZENECA-2007UW22068

PATIENT
  Age: 75 Year
  Sex: Female

DRUGS (5)
  1. TOPROL-XL [Suspect]
     Indication: HYPERTENSION
     Route: 048
  2. IMDUR [Concomitant]
  3. VYTORIN [Concomitant]
  4. PLAVIX [Concomitant]
  5. LOTREL [Concomitant]
     Dosage: 5/20

REACTIONS (1)
  - ABNORMAL FAECES [None]
